FAERS Safety Report 6818955-4 (Version None)
Quarter: 2010Q3

REPORT INFORMATION
  Report Type: 
  Country: None (occurrence: None)
  Receive Date: 20100707
  Receipt Date: 20100311
  Transmission Date: 20110219
  Serious: Yes (Other)
  Sender: FDA-Public Use
  Company Number: US-ASTRAZENECA-2009UW21211

PATIENT
  Age: 16862 Day
  Sex: Female

DRUGS (8)
  1. SEROQUEL [Suspect]
     Dosage: 100 MG TO 300 MG
     Route: 048
     Dates: start: 20001022
  2. AMITRIPTYLINE HCL [Concomitant]
     Dates: start: 20001022
  3. RISPERDAL [Concomitant]
     Dates: start: 20010117
  4. LITHIUM CARBONATE [Concomitant]
     Dates: start: 20000117
  5. CLONAZEPAM [Concomitant]
     Dates: start: 20010117
  6. HYDROXYZINE HCL [Concomitant]
     Dates: start: 20010124
  7. ZYPREXA [Concomitant]
     Dosage: 5MG TO 10MG
     Dates: start: 20050506
  8. HALDOL [Concomitant]
     Dates: start: 20050506

REACTIONS (5)
  - DIABETES MELLITUS [None]
  - DIABETES MELLITUS INADEQUATE CONTROL [None]
  - KETOACIDOSIS [None]
  - PANCREATITIS [None]
  - ULNAR NEURITIS [None]
